FAERS Safety Report 11726661 (Version 1)
Quarter: 2015Q4

REPORT INFORMATION
  Report Type: Report from Study
  Country: US (occurrence: US)
  Receive Date: 20151112
  Receipt Date: 20151112
  Transmission Date: 20160304
  Serious: Yes (Other)
  Sender: FDA-Public Use
  Company Number: US-AMGEN-USASL2015119081

PATIENT
  Age: 66 Year
  Sex: Female

DRUGS (1)
  1. ENBREL [Suspect]
     Active Substance: ETANERCEPT
     Indication: PRODUCT USED FOR UNKNOWN INDICATION
     Dosage: UNK UNK, UNK
     Route: 065
     Dates: start: 2000

REACTIONS (6)
  - Bedridden [Unknown]
  - Musculoskeletal disorder [Unknown]
  - Impaired driving ability [Unknown]
  - Knee arthroplasty [Unknown]
  - Elbow deformity [Unknown]
  - Drug ineffective [Unknown]
